FAERS Safety Report 14346527 (Version 2)
Quarter: 2018Q1

REPORT INFORMATION
  Report Type: Spontaneous
  Country: ES (occurrence: ES)
  Receive Date: 20180103
  Receipt Date: 20180119
  Transmission Date: 20180509
  Serious: Yes (Hospitalization, Other)
  Sender: FDA-Public Use
  Company Number: ES-BECTON DICKINSON-2017BDN00318

PATIENT
  Age: 51 Year
  Sex: Male

DRUGS (1)
  1. CHLORHEXIDINE-ALCOHOL [Suspect]
     Active Substance: ALCOHOL\CHLORHEXIDINE GLUCONATE
     Indication: ANTIBIOTIC PROPHYLAXIS
     Dosage: UNK UNK, ONCE
     Route: 061

REACTIONS (3)
  - Debridement [Recovered/Resolved]
  - Thermal burn [Recovered/Resolved]
  - Surgery [Recovered/Resolved]
